FAERS Safety Report 20901926 (Version 2)
Quarter: 2022Q2

REPORT INFORMATION
  Report Type: Spontaneous
  Country: DK (occurrence: None)
  Receive Date: 20220601
  Receipt Date: 20220630
  Transmission Date: 20220721
  Serious: Yes (Other)
  Sender: FDA-Public Use
  Company Number: DK-ROCHE-3106609

PATIENT
  Sex: Female

DRUGS (1)
  1. OCREVUS [Suspect]
     Active Substance: OCRELIZUMAB
     Indication: Product used for unknown indication
     Dosage: LAST DOSE OF OCRELIZUMAB:12/MAY/2022
     Route: 065
     Dates: start: 20190930

REACTIONS (3)
  - Fluid retention [Unknown]
  - Polyuria [Unknown]
  - Genital herpes [Unknown]
